FAERS Safety Report 4713895-9 (Version None)
Quarter: 2005Q3

REPORT INFORMATION
  Report Type: 
  Country: None (occurrence: None)
  Receive Date: 20050712
  Receipt Date: 20050627
  Transmission Date: 20060218
  Serious: Yes (Other)
  Sender: FDA-Public Use
  Company Number: USA0506101368

PATIENT
  Age: 62 Year
  Sex: Female

DRUGS (4)
  1. HUMALOG MIX 75/25 [Suspect]
     Dosage: 30 U DAY
  2. HUMULIN R [Suspect]
  3. LANTUS [Concomitant]
  4. GLUCOPHAGE (METFORMIN /00082701/) [Concomitant]

REACTIONS (7)
  - ARTERIAL STENT INSERTION [None]
  - ARTHRITIS [None]
  - CHRONIC OBSTRUCTIVE PULMONARY DISEASE [None]
  - FATIGUE [None]
  - FIBROMYALGIA [None]
  - PHARYNGEAL OPERATION [None]
  - SINUS OPERATION [None]
